FAERS Safety Report 24126197 (Version 2)
Quarter: 2024Q3

REPORT INFORMATION
  Report Type: Spontaneous
  Country: PL (occurrence: PL)
  Receive Date: 20240723
  Receipt Date: 20240725
  Transmission Date: 20241016
  Serious: Yes (Hospitalization, Other)
  Sender: MERCK
  Company Number: PL-009507513-2407POL011955

PATIENT
  Age: 66 Year
  Sex: Female
  Weight: 83 kg

DRUGS (5)
  1. KEYTRUDA [Suspect]
     Active Substance: PEMBROLIZUMAB
     Indication: Triple negative breast cancer
     Dosage: 200 MILLIGRAM, EVERY 21 DAYS
     Route: 042
     Dates: start: 20240405, end: 20240405
  2. PACLITAXEL [Suspect]
     Active Substance: PACLITAXEL
     Indication: Triple negative breast cancer
     Dosage: 193 MILLIGRAM
     Route: 042
     Dates: start: 20240405, end: 2024
  3. PACLITAXEL [Suspect]
     Active Substance: PACLITAXEL
     Dosage: 193 MILLIGRAM
     Route: 042
     Dates: start: 20240523
  4. EUTHYROX [Concomitant]
     Active Substance: LEVOTHYROXINE SODIUM
     Indication: Hypothyroidism
     Dosage: 25 MICROGRAM, QD
     Route: 048
     Dates: start: 20240405
  5. LEVOTHYROXINE SODIUM [Concomitant]
     Active Substance: LEVOTHYROXINE SODIUM
     Indication: Autoimmune thyroiditis
     Dosage: 25 MICROGRAM, QD
     Dates: start: 201607

REACTIONS (5)
  - Cytomegalovirus gastritis [Recovering/Resolving]
  - Skin lesion [Unknown]
  - Rash papular [Unknown]
  - Peripheral swelling [Unknown]
  - Hypersensitivity [Unknown]

NARRATIVE: CASE EVENT DATE: 20240401
